FAERS Safety Report 6554034-1 (Version None)
Quarter: 2010Q1

REPORT INFORMATION
  Report Type: 
  Country: None (occurrence: None)
  Receive Date: 20100125
  Receipt Date: 20100125
  Transmission Date: 20100710
  Serious: Yes (Other)
  Sender: FDA-Public Use
  Company Number: None

PATIENT
  Sex: Female
  Weight: 3.85 kg

DRUGS (1)
  1. GENTAK [Suspect]
     Indication: PROPHYLAXIS
     Dosage: APPLY SMALL AMOUNT ONCE OPTHALMIC; LATER CONTINUED AS QID QID OPTHALMIC
     Route: 047
     Dates: start: 20091114, end: 20091117

REACTIONS (2)
  - ERYTHEMA [None]
  - SWELLING [None]
